FAERS Safety Report 7716093-X (Version None)
Quarter: 2011Q3

REPORT INFORMATION
  Report Type: 
  Country: None (occurrence: None)
  Receive Date: 20110829
  Receipt Date: 20110819
  Transmission Date: 20111222
  Serious: Yes (Other)
  Sender: FDA-Public Use
  Company Number: US-GLAXOSMITHKLINE-A0933894A

PATIENT
  Age: 54 Year
  Sex: Female
  Weight: 120 kg

DRUGS (7)
  1. VALTREX [Suspect]
     Indication: GENITAL HERPES
     Dosage: 500MG TWICE PER DAY
     Route: 048
     Dates: start: 20010101
  2. MULTI-VITAMIN [Concomitant]
     Dosage: 1TAB PER DAY
     Route: 048
     Dates: start: 19900101
  3. SERTRALINE HYDROCHLORIDE [Concomitant]
     Indication: DEPRESSION
     Dosage: 100MG PER DAY
     Route: 048
     Dates: start: 20060101
  4. CELEBREX [Concomitant]
     Indication: ARTHRITIS
     Dosage: 1TAB AS REQUIRED
     Route: 048
     Dates: start: 20080101
  5. FUROSEMIDE [Concomitant]
     Indication: OEDEMA
     Dosage: 20MG PER DAY
     Route: 048
     Dates: start: 20090101
  6. IMIPRAMINE [Concomitant]
     Indication: DEPRESSION
     Dosage: 20MG PER DAY
     Route: 048
     Dates: start: 20050101
  7. BACLOFEN [Concomitant]
     Indication: MUSCLE SPASTICITY
     Dosage: 20MG FOUR TIMES PER DAY
     Route: 048
     Dates: start: 20020101

REACTIONS (10)
  - ANORECTAL DISCOMFORT [None]
  - MUSCLE RIGIDITY [None]
  - TREMOR [None]
  - AFFECTIVE DISORDER [None]
  - DIPLEGIA [None]
  - NECK PAIN [None]
  - ABNORMAL FAECES [None]
  - ANXIETY [None]
  - BOWEL MOVEMENT IRREGULARITY [None]
  - PRODUCT QUALITY ISSUE [None]
